FAERS Safety Report 20171561 (Version 1)
Quarter: 2021Q4

REPORT INFORMATION
  Report Type: Spontaneous
  Country: US (occurrence: US)
  Receive Date: 20211210
  Receipt Date: 20211210
  Transmission Date: 20220303
  Serious: No
  Sender: FDA-Public Use
  Company Number: US-SANOFI-00880389

PATIENT
  Sex: Male

DRUGS (1)
  1. TOUJEO MAX [Suspect]
     Active Substance: INSULIN GLARGINE
     Dosage: 70 IU, QD

REACTIONS (2)
  - Product storage error [Unknown]
  - Product communication issue [Unknown]
